FAERS Safety Report 4893303-8 (Version None)
Quarter: 2006Q1

REPORT INFORMATION
  Report Type: 
  Country: None (occurrence: None)
  Receive Date: 20060124
  Receipt Date: 20060119
  Transmission Date: 20060701
  Serious: Yes (Other)
  Sender: FDA-Public Use
  Company Number: S05-USA-05238-01

PATIENT
  Age: 57 Year
  Sex: Male

DRUGS (3)
  1. LEXAPRO [Suspect]
     Dates: start: 20050501
  2. IBUPROFEN [Concomitant]
  3. SUDAFED 12 HOUR [Concomitant]

REACTIONS (1)
  - LUPUS-LIKE SYNDROME [None]
